FAERS Safety Report 4558622-3 (Version None)
Quarter: 2005Q1

REPORT INFORMATION
  Report Type: 
  Country: None (occurrence: None)
  Receive Date: 20050119
  Receipt Date: 20050110
  Transmission Date: 20050727
  Serious: Yes (Other)
  Sender: FDA-Public Use
  Company Number: 2004114919

PATIENT
  Age: 14 Year
  Sex: Male
  Weight: 43.8 kg

DRUGS (3)
  1. GENOTROPIN [Suspect]
     Indication: HYPOPITUITARISM
     Dosage: 0.3 MG (0.3 MG, 1 IN 1 D), SUBCUTANEOUS
     Route: 058
  2. LEVOTHYROXINE SODIUM [Concomitant]
  3. HYDROCORTISONE ACETATE (HYDROCORTISONE ACETATE) [Concomitant]

REACTIONS (2)
  - DRUG CLEARANCE DECREASED [None]
  - PHARMACEUTICAL PRODUCT COMPLAINT [None]
